FAERS Safety Report 7146676-X (Version None)
Quarter: 2010Q4

REPORT INFORMATION
  Report Type: 
  Country: None (occurrence: None)
  Receive Date: 20101208
  Receipt Date: 20101207
  Transmission Date: 20110411
  Serious: Yes (Death)
  Sender: FDA-Public Use
  Company Number: US-GILEAD-2010-0032805

PATIENT
  Sex: Female

DRUGS (14)
  1. LETAIRIS [Suspect]
     Indication: PULMONARY ARTERIAL HYPERTENSION
     Route: 048
     Dates: start: 20081106
  2. REVATIO [Concomitant]
  3. SPIRONOLACTONE [Concomitant]
  4. FUROSEMIDE [Concomitant]
  5. ATACAND [Concomitant]
  6. SULAR [Concomitant]
  7. ZETIA [Concomitant]
  8. DIGOXIN [Concomitant]
  9. CRESTOR [Concomitant]
  10. ALBUTEROL [Concomitant]
  11. PREDNISONE [Concomitant]
  12. PREVACID [Concomitant]
  13. EFFEXOR [Concomitant]
  14. BACTRIM [Concomitant]

REACTIONS (1)
  - DEATH [None]
